FAERS Safety Report 6873140-5 (Version None)
Quarter: 2010Q3

REPORT INFORMATION
  Report Type: 
  Country: None (occurrence: None)
  Receive Date: 20100723
  Receipt Date: 20081127
  Transmission Date: 20110219
  Serious: No
  Sender: FDA-Public Use
  Company Number: US-PFIZER INC-2008097423

PATIENT
  Sex: Male
  Weight: 79.38 kg

DRUGS (4)
  1. CHANTIX [Suspect]
     Indication: SMOKING CESSATION THERAPY
     Dates: start: 20081001
  2. PAXIL [Concomitant]
  3. LITHIUM [Concomitant]
  4. KLONOPIN [Concomitant]

REACTIONS (4)
  - AGGRESSION [None]
  - CONSTIPATION [None]
  - ERECTILE DYSFUNCTION [None]
  - MOOD SWINGS [None]
